FAERS Safety Report 11623032 (Version 1)
Quarter: 2015Q4

REPORT INFORMATION
  Report Type: Spontaneous
  Country: US (occurrence: US)
  Receive Date: 20151013
  Receipt Date: 20151013
  Transmission Date: 20160304
  Serious: No
  Sender: FDA-Public Use
  Company Number: US-JNJFOC-20141107906

PATIENT
  Age: 80 Year
  Sex: Female
  Weight: 40.37 kg

DRUGS (3)
  1. EXTRA STRENGTH TYLENOL CAPLETS [Suspect]
     Active Substance: ACETAMINOPHEN
     Route: 048
  2. EXTRA STRENGTH TYLENOL CAPLETS [Suspect]
     Active Substance: ACETAMINOPHEN
     Indication: HEADACHE
     Route: 048
     Dates: start: 20140924, end: 20140924
  3. VITAMIN [Concomitant]
     Active Substance: VITAMINS
     Indication: NUTRITIONAL SUPPLEMENTATION
     Route: 065

REACTIONS (1)
  - Urticaria [Recovered/Resolved]

NARRATIVE: CASE EVENT DATE: 20140925
